FAERS Safety Report 4767217-8 (Version None)
Quarter: 2005Q3

REPORT INFORMATION
  Report Type: 
  Country: None (occurrence: None)
  Receive Date: 20050912
  Receipt Date: 20050912
  Transmission Date: 20060218
  Serious: Yes (Hospitalization)
  Sender: FDA-Public Use
  Company Number: None

PATIENT
  Sex: Female

DRUGS (2)
  1. DEPO-MEDROL [Suspect]
     Indication: PAIN
     Dosage: 1 CC, INTRARTICULAR
     Route: 014
  2. KENALOG [Suspect]
     Indication: PAIN
     Dosage: 1CC, INTRARTICULAR
     Route: 014

REACTIONS (5)
  - CHEST DISCOMFORT [None]
  - DIZZINESS [None]
  - DYSPNOEA [None]
  - HYPERTENSION [None]
  - TREMOR [None]
